FAERS Safety Report 24467199 (Version 1)
Quarter: 2024Q4

REPORT INFORMATION
  Report Type: Report from Study
  Country: US (occurrence: US)
  Receive Date: 20241018
  Receipt Date: 20241018
  Transmission Date: 20250115
  Serious: No
  Sender: ROCHE
  Company Number: US-ROCHE-3567891

PATIENT
  Age: 46 Year
  Sex: Female

DRUGS (5)
  1. XOLAIR [Suspect]
     Active Substance: OMALIZUMAB
     Indication: Idiopathic urticaria
     Route: 042
  2. FAMOTIDINE [Concomitant]
     Active Substance: FAMOTIDINE
     Route: 048
  3. CETIRIZINE HYDROCHLORIDE [Concomitant]
     Active Substance: CETIRIZINE HYDROCHLORIDE
     Route: 048
  4. PREDNISONE [Concomitant]
     Active Substance: PREDNISONE
     Route: 048
  5. FLUTICASONE PROPIONATE [Concomitant]
     Active Substance: FLUTICASONE PROPIONATE
     Route: 048

REACTIONS (2)
  - Incorrect dose administered [Unknown]
  - No adverse event [Unknown]
